FAERS Safety Report 8464936-7 (Version None)
Quarter: 2012Q2

REPORT INFORMATION
  Report Type: 
  Country: None (occurrence: None)
  Receive Date: 20120626
  Receipt Date: 20120618
  Transmission Date: 20120825
  Serious: Yes (Other)
  Sender: FDA-Public Use
  Company Number: US-JNJFOC-20120521378

PATIENT
  Sex: Male
  Weight: 90.72 kg

DRUGS (18)
  1. TOPROL-XL [Concomitant]
     Indication: CARDIAC DISORDER
     Route: 048
  2. ASPIRIN [Concomitant]
     Route: 065
  3. LEVOFLOXACIN [Suspect]
     Indication: PNEUMONIA
     Dosage: FOR 5 DAYS
     Route: 048
     Dates: start: 20120413, end: 20120418
  4. CEPHALEXIN [Concomitant]
     Route: 065
  5. ASCORBIC ACID [Concomitant]
     Route: 065
  6. DOXYCYCLINE [Concomitant]
     Route: 065
  7. ALBUTEROL [Concomitant]
     Dosage: 0.83% 2.5 MG/ 3MI
     Route: 065
  8. GLYBURIDE [Concomitant]
     Indication: DIABETES MELLITUS
     Route: 048
  9. TOPROL-XL [Concomitant]
     Indication: BLOOD PRESSURE
     Route: 048
  10. COMBIVENT [Concomitant]
     Indication: LUNG DISORDER
     Route: 055
  11. ATROVENT [Concomitant]
     Dosage: 0.02% 0.5 MG/2.5 ML
     Route: 065
  12. THEOPHYLLINE [Concomitant]
     Indication: LUNG DISORDER
     Route: 048
  13. JANUVIA [Concomitant]
     Indication: DIABETES MELLITUS
     Route: 065
  14. AMILORIDE HYDROCHLORIDE [Concomitant]
     Indication: DIURETIC THERAPY
     Route: 065
     Dates: start: 20110101
  15. SPIRIVA [Concomitant]
     Indication: LUNG DISORDER
     Route: 055
  16. MAGNESIUM SULFATE [Concomitant]
     Route: 065
  17. MULTI-VITAMINS [Concomitant]
     Route: 065
  18. PREDNISONE TAB [Concomitant]
     Indication: LUNG DISORDER
     Dosage: EVERY OTHER DAY
     Route: 048

REACTIONS (2)
  - TENDON RUPTURE [None]
  - THROMBOSIS [None]
